FAERS Safety Report 10340478 (Version 3)
Quarter: 2014Q3

REPORT INFORMATION
  Report Type: Spontaneous
  Country: US (occurrence: US)
  Receive Date: 20140724
  Receipt Date: 20140827
  Transmission Date: 20150326
  Serious: Yes (Other)
  Sender: FDA-Public Use
  Company Number: US-PFIZER INC-2014201385

PATIENT
  Sex: Male

DRUGS (1)
  1. EMCYT [Suspect]
     Active Substance: ESTRAMUSTINE PHOSPHATE SODIUM
     Indication: PROSTATE CANCER METASTATIC
     Dosage: UNK

REACTIONS (2)
  - Cardiac disorder [Unknown]
  - Nausea [Unknown]
